FAERS Safety Report 10386798 (Version 1)
Quarter: 2014Q3

REPORT INFORMATION
  Report Type: Spontaneous
  Country: US (occurrence: None)
  Receive Date: 20140814
  Receipt Date: 20140814
  Transmission Date: 20150326
  Serious: Yes (Other)
  Sender: FDA-Public Use
  Company Number: None

PATIENT
  Age: 53 Year
  Sex: Female
  Weight: 70.31 kg

DRUGS (2)
  1. PHEN-TABZ (AMPHETA-HCL) [Suspect]
     Active Substance: DIETARY SUPPLEMENT
     Indication: WAIST CIRCUMFERENCE INCREASED
     Dosage: 1 PILL BEFORE BREAKFAST
     Route: 048
     Dates: start: 20140619
  2. PHEN-TABZ (AMPHETA-HCL) [Suspect]
     Active Substance: DIETARY SUPPLEMENT
     Indication: METABOLIC SYNDROME
     Dosage: 1 PILL BEFORE BREAKFAST
     Route: 048
     Dates: start: 20140619

REACTIONS (4)
  - Thinking abnormal [None]
  - Loss of consciousness [None]
  - Mania [None]
  - Euphoric mood [None]

NARRATIVE: CASE EVENT DATE: 20140619
